FAERS Safety Report 4507188-2 (Version None)
Quarter: 2004Q4

REPORT INFORMATION
  Report Type: 
  Country: None (occurrence: None)
  Receive Date: 20041025
  Receipt Date: 20040520
  Transmission Date: 20050328
  Serious: Yes (Other)
  Sender: FDA-Public Use
  Company Number: US-JNJFOC-20040505189

PATIENT
  Age: 60 Year
  Sex: Female
  Weight: 94.3482 kg

DRUGS (11)
  1. INFLIXIMAB (INFLIXIMAB, RECOMBINANT) LYOPHILIZED POWDER [Suspect]
     Indication: RHEUMATOID ARTHRITIS
     Dosage: 600 MG, INTRAVENOUS
     Route: 042
     Dates: start: 20031110, end: 20031110
  2. INFLIXIMAB (INFLIXIMAB, RECOMBINANT) LYOPHILIZED POWDER [Suspect]
     Indication: RHEUMATOID ARTHRITIS
     Dosage: 600 MG, INTRAVENOUS
     Route: 042
     Dates: start: 20011016
  3. INFLIXIMAB (INFLIXIMAB, RECOMBINANT) LYOPHILIZED POWDER [Suspect]
     Indication: RHEUMATOID ARTHRITIS
     Dosage: 600 MG, INTRAVENOUS
     Route: 042
     Dates: start: 20031027
  4. ADVAIR (SERETIDE MITE) [Concomitant]
  5. KETOPROFEN [Concomitant]
  6. FOLIC ACID [Concomitant]
  7. TYLENOL SINUS (TYLENOL SINUS MEDICATION) [Concomitant]
  8. METHOTREXATE [Concomitant]
  9. TYLENOL [Concomitant]
  10. NAPROSYN [Concomitant]
  11. PREVACID [Concomitant]

REACTIONS (3)
  - BLOOD PRESSURE DECREASED [None]
  - CHEST PAIN [None]
  - NERVOUSNESS [None]
